FAERS Safety Report 10594682 (Version 1)
Quarter: 2014Q4

REPORT INFORMATION
  Report Type: Spontaneous
  Country: US (occurrence: US)
  Receive Date: 20141120
  Receipt Date: 20141120
  Transmission Date: 20150529
  Serious: Yes (Hospitalization)
  Sender: FDA-Public Use
  Company Number: US-TEVA-499738USA

PATIENT
  Age: 76 Year
  Sex: Male
  Weight: 96.25 kg

DRUGS (20)
  1. FOLIC ACID. [Concomitant]
     Active Substance: FOLIC ACID
  2. UBIDECARENONE [Concomitant]
     Active Substance: UBIDECARENONE
  3. COLECALCIFEROL [Concomitant]
     Active Substance: CHOLECALCIFEROL
  4. PROVENGE [Suspect]
     Active Substance: SIPULEUCEL-T
     Route: 042
     Dates: start: 20140613, end: 20140613
  5. PROVENGE [Suspect]
     Active Substance: SIPULEUCEL-T
     Route: 042
     Dates: start: 20140711, end: 20140711
  6. ASCORBIC ACID. [Concomitant]
     Active Substance: ASCORBIC ACID
  7. CAMELLIA SINENSIS [Concomitant]
     Active Substance: GREEN TEA LEAF
  8. MILK THISTLE [Concomitant]
     Active Substance: MILK THISTLE
  9. FERROUS SULFATE [Concomitant]
     Active Substance: FERROUS SULFATE\FERROUS SULFATE, DRIED
  10. AMIODARONE [Suspect]
     Active Substance: AMIODARONE
     Indication: ATRIAL FIBRILLATION
     Dates: start: 201406, end: 20140713
  11. RESVERATROL [Concomitant]
     Active Substance: RESVERATROL
  12. PROSTATE HEALTH COMPLEX [Concomitant]
  13. CALCIUM CARBONATE. [Concomitant]
     Active Substance: CALCIUM CARBONATE
  14. ATORVASTATIN CALCIUM. [Concomitant]
     Active Substance: ATORVASTATIN CALCIUM
  15. VACCINIUM MACROCARPON [Concomitant]
  16. B-50 [Concomitant]
  17. PROVENGE [Suspect]
     Active Substance: SIPULEUCEL-T
     Indication: PROSTATE CANCER
     Dosage: SUSPENSION
     Route: 042
     Dates: start: 20140605, end: 20140605
  18. MULTIPLE VITAMINS [Concomitant]
     Active Substance: VITAMINS
  19. GLYCERYL TRINITRATE [Concomitant]
     Active Substance: NITROGLYCERIN
  20. PARACETAMOL [Concomitant]
     Active Substance: ACETAMINOPHEN

REACTIONS (3)
  - Atrioventricular block second degree [Unknown]
  - Atrioventricular block complete [Unknown]
  - Bradycardia [Unknown]

NARRATIVE: CASE EVENT DATE: 20140711
